FAERS Safety Report 10010336 (Version 1)
Quarter: 2014Q1

REPORT INFORMATION
  Report Type: Report from Study
  Country: JP (occurrence: JP)
  Receive Date: 20140314
  Receipt Date: 20140314
  Transmission Date: 20141002
  Serious: Yes (Life-Threatening, Other)
  Sender: FDA-Public Use
  Company Number: JP-AMGEN-JPNCT2013092211

PATIENT
  Age: 86 Year
  Sex: Male
  Weight: 62 kg

DRUGS (10)
  1. DARBEPOETIN ALFA [Suspect]
     Indication: NEPHROGENIC ANAEMIA
     Dosage: 120 MUG, Q4WK
     Route: 058
     Dates: start: 20110228
  2. CALBLOCK [Concomitant]
     Dosage: UNK UNK, UNK
     Route: 048
  3. ATELEC [Concomitant]
     Dosage: UNK UNK, UNK
     Route: 048
  4. BAYASPIRIN [Concomitant]
     Dosage: UNK UNK, UNK
     Route: 048
  5. SODIUM BICARBONATE [Concomitant]
     Dosage: UNK UNK, UNK
     Route: 048
  6. TAKEPRON [Concomitant]
     Dosage: UNK UNK, UNK
     Route: 048
  7. METHYCOBAL [Concomitant]
     Dosage: UNK UNK, UNK
     Route: 048
  8. BIOFERMIN                          /01617201/ [Concomitant]
     Dosage: UNK UNK, UNK
     Route: 048
  9. GRACEVIT [Concomitant]
     Dosage: UNK
     Route: 048
  10. CEFMETAZOLE SODIUM [Concomitant]
     Dosage: UNK
     Route: 065

REACTIONS (3)
  - Prostate cancer [Recovering/Resolving]
  - C-reactive protein increased [Unknown]
  - Colon cancer [Unknown]
